FAERS Safety Report 26064977 (Version 1)
Quarter: 2025Q4

REPORT INFORMATION
  Report Type: Spontaneous
  Country: AU (occurrence: AU)
  Receive Date: 20251119
  Receipt Date: 20251119
  Transmission Date: 20260117
  Serious: Yes (Death)
  Sender: LUNDBECK
  Company Number: AU-SA-2025SA337527

PATIENT
  Age: 2 Day
  Sex: Male

DRUGS (14)
  1. VIGABATRIN [Suspect]
     Active Substance: VIGABATRIN
     Indication: Muscle spasms
     Dosage: UNK
  2. VIGABATRIN [Suspect]
     Active Substance: VIGABATRIN
     Indication: Status epilepticus
  3. VALPROATE SODIUM [Suspect]
     Active Substance: VALPROATE SODIUM
     Indication: Muscle spasms
     Dosage: UNK
  4. VALPROATE SODIUM [Suspect]
     Active Substance: VALPROATE SODIUM
     Indication: Status epilepticus
  5. LEVETIRACETAM [Suspect]
     Active Substance: LEVETIRACETAM
     Indication: Muscle spasms
     Dosage: UNK
  6. LEVETIRACETAM [Suspect]
     Active Substance: LEVETIRACETAM
     Indication: Status epilepticus
  7. PHENOBARBITAL [Suspect]
     Active Substance: PHENOBARBITAL
     Indication: Muscle spasms
     Dosage: UNK
  8. PHENOBARBITAL [Suspect]
     Active Substance: PHENOBARBITAL
     Indication: Status epilepticus
  9. PHENYTOIN [Suspect]
     Active Substance: PHENYTOIN
     Indication: Muscle spasms
     Dosage: UNK
  10. PHENYTOIN [Suspect]
     Active Substance: PHENYTOIN
     Indication: Status epilepticus
  11. UNSPECIFIED INGREDIENT [Suspect]
     Active Substance: UNSPECIFIED INGREDIENT
     Indication: Muscle spasms
     Dosage: UNK
  12. UNSPECIFIED INGREDIENT [Suspect]
     Active Substance: UNSPECIFIED INGREDIENT
     Indication: Status epilepticus
  13. CHLORAL HYDRATE [Suspect]
     Active Substance: CHLORAL HYDRATE
     Indication: Muscle spasms
     Dosage: UNK
  14. CHLORAL HYDRATE [Suspect]
     Active Substance: CHLORAL HYDRATE
     Indication: Status epilepticus

REACTIONS (1)
  - Drug ineffective [Fatal]
